FAERS Safety Report 16517441 (Version 1)
Quarter: 2019Q3

REPORT INFORMATION
  Report Type: Spontaneous
  Country: US (occurrence: US)
  Receive Date: 20190702
  Receipt Date: 20190702
  Transmission Date: 20191004
  Serious: Yes (Hospitalization)
  Sender: FDA-Public Use
  Company Number: US-ALKERMES INC.-ALK-2019-003378

PATIENT
  Age: 35 Year
  Sex: Male

DRUGS (2)
  1. ARISTADA [Suspect]
     Active Substance: ARIPIPRAZOLE LAUROXIL
     Indication: SCHIZOPHRENIA
     Dosage: 1064 MG, Q2MO
     Route: 030
  2. ESCITALOPRAM [Concomitant]
     Active Substance: ESCITALOPRAM OXALATE
     Indication: PRODUCT USED FOR UNKNOWN INDICATION
     Dosage: UNK

REACTIONS (3)
  - Schizophrenia [Unknown]
  - Hospitalisation [Unknown]
  - Agitation [Unknown]

NARRATIVE: CASE EVENT DATE: 2019
